FAERS Safety Report 6057523-1 (Version None)
Quarter: 2009Q1

REPORT INFORMATION
  Report Type: 
  Country: None (occurrence: None)
  Receive Date: 20090129
  Receipt Date: 20090119
  Transmission Date: 20090719
  Serious: Yes (Other)
  Sender: FDA-Public Use
  Company Number: GB-ROCHE-609119

PATIENT
  Sex: Male
  Weight: 109.7 kg

DRUGS (5)
  1. ORLISTAT [Suspect]
     Indication: OBESITY
     Route: 048
     Dates: start: 20080625
  2. RAMIPRIL [Concomitant]
     Indication: BLOOD PRESSURE
     Route: 048
  3. ALLOPURINOL [Concomitant]
     Indication: GOUT
     Route: 048
  4. ASPIRIN [Concomitant]
     Route: 048
  5. SIMVASTATIN [Concomitant]
     Route: 048

REACTIONS (5)
  - BACK PAIN [None]
  - COUGH [None]
  - FALL [None]
  - INFECTION [None]
  - VERTIGO [None]
